FAERS Safety Report 14387564 (Version 1)
Quarter: 2018Q1

REPORT INFORMATION
  Report Type: Spontaneous
  Country: US (occurrence: US)
  Receive Date: 20180115
  Receipt Date: 20180115
  Transmission Date: 20180509
  Serious: Yes (Other)
  Sender: FDA-Public Use
  Company Number: US-SA-2017SA193227

PATIENT
  Age: 39 Year
  Sex: Female
  Weight: 63.5 kg

DRUGS (8)
  1. TAXOTERE [Suspect]
     Active Substance: DOCETAXEL
     Dosage: 130-131MG
     Route: 051
     Dates: start: 20080425, end: 20080425
  2. DOXORUBICIN [Concomitant]
     Active Substance: DOXORUBICIN
  3. CYTOXAN [Concomitant]
     Active Substance: CYCLOPHOSPHAMIDE
  4. TAXOTERE [Suspect]
     Active Substance: DOCETAXEL
     Dosage: 130-131MG
     Route: 051
     Dates: start: 20080728, end: 20080728
  5. CARBOPLATIN. [Concomitant]
     Active Substance: CARBOPLATIN
  6. HERCEPTIN [Concomitant]
     Active Substance: TRASTUZUMAB
  7. PARAPLATIN [Concomitant]
     Active Substance: CARBOPLATIN
  8. NEOSAR [Concomitant]
     Active Substance: CYCLOPHOSPHAMIDE

REACTIONS (2)
  - Psychological trauma [Unknown]
  - Alopecia [Not Recovered/Not Resolved]

NARRATIVE: CASE EVENT DATE: 200901
